FAERS Safety Report 24081051 (Version 1)
Quarter: 2024Q3

REPORT INFORMATION
  Report Type: Spontaneous
  Country: US (occurrence: US)
  Receive Date: 20240711
  Receipt Date: 20240711
  Transmission Date: 20241017
  Serious: No
  Sender: TEVA
  Company Number: US-ABBVIE-5827584

PATIENT
  Sex: Female

DRUGS (1)
  1. OXYTROL FOR WOMEN [Suspect]
     Active Substance: OXYBUTYNIN
     Indication: Product used for unknown indication
     Dosage: FORM STRENGTH- OXYBUTYNIN 3.9MG/DAY PCH
     Route: 062

REACTIONS (1)
  - Drug ineffective [Unknown]
